FAERS Safety Report 9235811 (Version 2)
Quarter: 2013Q2

REPORT INFORMATION
  Report Type: Report from Study
  Country: US (occurrence: US)
  Receive Date: 20130417
  Receipt Date: 20130506
  Transmission Date: 20140414
  Serious: Yes (Death)
  Sender: FDA-Public Use
  Company Number: PHEH2013US008549

PATIENT
  Sex: Male

DRUGS (23)
  1. AFINITOR [Suspect]
     Indication: RENAL CANCER METASTATIC
     Dosage: 10 MG, QD
     Route: 048
  2. LYRICA [Concomitant]
     Dosage: 150 MG,
  3. DILAUDID [Concomitant]
     Dosage: 2 MG,
  4. B COMPLEX [Concomitant]
  5. MORPHINE SULFATE [Concomitant]
     Dosage: 80 MG,
  6. CINNAMON [Concomitant]
     Dosage: 500 MG,
  7. SPIRULINA [Concomitant]
     Dosage: 500 MG, UNK
  8. STOOL SOFTENER [Concomitant]
     Dosage: 240 MG,
  9. LAXATIVE [Concomitant]
     Dosage: 8.6 MG,
  10. ALEVE [Concomitant]
     Dosage: 220 MG,
  11. KIDNEY [Concomitant]
     Dosage: 280 MG,
  12. CALCIUM 500+D [Concomitant]
  13. PANCREATIN [Concomitant]
     Dosage: 500 MG,
  14. FLAXSEED OIL [Concomitant]
  15. RESVERATROL [Concomitant]
  16. TYLENOL [Concomitant]
     Dosage: 325 MG,
  17. OMEGA 3 [Concomitant]
     Dosage: 1000 MG, UNK
  18. VITAMIN D3 [Concomitant]
  19. CHLORELLA [Concomitant]
  20. VITAMIIN C [Concomitant]
  21. VITAMIN B12 [Concomitant]
  22. GARLIC [Concomitant]
  23. NATTOKINASE [Concomitant]
     Dosage: 100 MG,

REACTIONS (2)
  - Renal cancer metastatic [Fatal]
  - Malignant neoplasm progression [Fatal]
